FAERS Safety Report 19850585 (Version 1)
Quarter: 2021Q3

REPORT INFORMATION
  Report Type: Spontaneous
  Country: CH (occurrence: CH)
  Receive Date: 20210917
  Receipt Date: 20210917
  Transmission Date: 20211014
  Serious: Yes (Hospitalization)
  Sender: FDA-Public Use
  Company Number: CH-TEVA-2021-CH-1953307

PATIENT
  Age: 26 Year
  Sex: Male
  Weight: 78 kg

DRUGS (4)
  1. IRFEN [Suspect]
     Active Substance: IBUPROFEN
     Dosage: 1200 MG
     Route: 048
     Dates: start: 20210718, end: 20210727
  2. CLARITHROMYCIN. [Suspect]
     Active Substance: CLARITHROMYCIN
     Dosage: 1500 MG
     Route: 048
     Dates: start: 20210727, end: 20210728
  3. TRAUMALIX FORTE GEL [Suspect]
     Active Substance: ETOFENAMATE
     Route: 065
  4. CIPROFLOXACIN. [Suspect]
     Active Substance: CIPROFLOXACIN
     Dosage: 1500 MG
     Route: 048
     Dates: start: 20210727, end: 20210728

REACTIONS (2)
  - Photosensitivity reaction [Not Recovered/Not Resolved]
  - Dermatitis exfoliative generalised [Not Recovered/Not Resolved]

NARRATIVE: CASE EVENT DATE: 20210727
